FAERS Safety Report 10755821 (Version 1)
Quarter: 2015Q1

REPORT INFORMATION
  Report Type: Spontaneous
  Country: GB (occurrence: GB)
  Receive Date: 20150202
  Receipt Date: 20150202
  Transmission Date: 20150721
  Serious: Yes (Other)
  Sender: FDA-Public Use
  Company Number: GB-TEVA-537139ISR

PATIENT
  Age: 78 Year
  Sex: Male

DRUGS (2)
  1. METFORMIN [Suspect]
     Active Substance: METFORMIN HYDROCHLORIDE
     Dosage: HAS TAKEN FOR AROUND TEN YEARS
  2. GLICLAZIDE [Suspect]
     Active Substance: GLICLAZIDE
     Dosage: HAS TAKEN FOR AROUND TWO YEARS

REACTIONS (2)
  - Gastric ulcer [Unknown]
  - Gastric disorder [Unknown]

NARRATIVE: CASE EVENT DATE: 201412
